FAERS Safety Report 10014579 (Version 2)
Quarter: 2014Q1

REPORT INFORMATION
  Report Type: Spontaneous
  Country: AT (occurrence: AT)
  Receive Date: 20140317
  Receipt Date: 20140317
  Transmission Date: 20141002
  Serious: Yes (Other)
  Sender: FDA-Public Use
  Company Number: AT-JNJFOC-20140117495

PATIENT
  Sex: Male
  Weight: 110 kg

DRUGS (5)
  1. XARELTO [Suspect]
     Indication: CEREBROVASCULAR ACCIDENT PROPHYLAXIS
     Route: 048
     Dates: start: 20131210, end: 20140122
  2. XARELTO [Suspect]
     Indication: ATRIAL FIBRILLATION
     Route: 048
     Dates: start: 20131210, end: 20140122
  3. GLUCOPHAGE [Concomitant]
     Indication: DIABETES MELLITUS
     Route: 065
  4. CONCOR [Concomitant]
     Indication: HYPERTENSION
     Route: 065
     Dates: start: 201204
  5. OLMESARTAN [Concomitant]
     Indication: HYPERTENSION
     Route: 065
     Dates: start: 20130731

REACTIONS (2)
  - Penile haemorrhage [Recovered/Resolved]
  - Phimosis [Unknown]
